FAERS Safety Report 20249282 (Version 1)
Quarter: 2021Q4

REPORT INFORMATION
  Report Type: Spontaneous
  Country: GB (occurrence: GB)
  Receive Date: 20211229
  Receipt Date: 20211229
  Transmission Date: 20220303
  Serious: Yes (Other)
  Sender: FDA-Public Use
  Company Number: None

PATIENT
  Age: 32 Year
  Sex: Male

DRUGS (4)
  1. LANSOPRAZOLE [Suspect]
     Active Substance: LANSOPRAZOLE
     Route: 065
  2. OMEPRAZOLE [Suspect]
     Active Substance: OMEPRAZOLE
     Route: 065
  3. LANSOPRAZOLE [Concomitant]
     Active Substance: LANSOPRAZOLE
     Indication: Gastrooesophageal reflux disease
  4. SAXENDA [Concomitant]
     Active Substance: LIRAGLUTIDE
     Indication: Overweight

REACTIONS (3)
  - Muscle spasms [Recovering/Resolving]
  - Abdominal pain [Not Recovered/Not Resolved]
  - Change of bowel habit [Not Recovered/Not Resolved]

NARRATIVE: CASE EVENT DATE: 20211115
